FAERS Safety Report 20278846 (Version 1)
Quarter: 2022Q1

REPORT INFORMATION
  Report Type: Spontaneous
  Country: US (occurrence: US)
  Receive Date: 20220103
  Receipt Date: 20220103
  Transmission Date: 20220423
  Serious: Yes (Other)
  Sender: FDA-Public Use
  Company Number: US-PURACAP-US-2021EPCLIT01341

PATIENT
  Age: 61 Year
  Sex: Male

DRUGS (1)
  1. DOXYCYCLINE HYCLATE [Suspect]
     Active Substance: DOXYCYCLINE HYCLATE
     Indication: Dermatomyositis
     Route: 065

REACTIONS (1)
  - Gastrointestinal injury [Recovered/Resolved]
